FAERS Safety Report 19828324 (Version 2)
Quarter: 2021Q4

REPORT INFORMATION
  Report Type: Spontaneous
  Country: IR (occurrence: IR)
  Receive Date: 20210914
  Receipt Date: 20211015
  Transmission Date: 20220303
  Serious: Yes (Life-Threatening, Hospitalization, Other)
  Sender: FDA-Public Use
  Company Number: IR-MYLANLABS-2021M1061009

PATIENT
  Age: 56 Year
  Sex: Female
  Weight: 70 kg

DRUGS (6)
  1. METHOTREXATE [Suspect]
     Active Substance: METHOTREXATE
     Indication: Rheumatoid arthritis
     Dosage: UNK UNK, QW (ONE DAY EACH WEEK,)
  2. METHOTREXATE [Suspect]
     Active Substance: METHOTREXATE
     Indication: Rheumatoid arthritis
     Dosage: UNK UNK, QW (ONE DAY EACH WEEK,)
  3. INSULIN NOS [Concomitant]
     Active Substance: INSULIN NOS
     Dosage: UNK
  4. CARVEDILOL [Concomitant]
     Active Substance: CARVEDILOL
     Dosage: UNK
  5. INDOMETHACIN [Concomitant]
     Active Substance: INDOMETHACIN
     Dosage: UNK
  6. LOSARTAN [Concomitant]
     Active Substance: LOSARTAN
     Dosage: UNK

REACTIONS (12)
  - Toxicity to various agents [Recovered/Resolved]
  - Gastrointestinal haemorrhage [Recovered/Resolved]
  - Haemorrhage [Recovered/Resolved]
  - Haematemesis [Recovered/Resolved]
  - Pancytopenia [Recovered/Resolved]
  - Melaena [Recovered/Resolved]
  - Conjunctival pallor [Recovered/Resolved]
  - Asthenia [Recovered/Resolved]
  - Tongue dry [Recovered/Resolved]
  - Mouth ulceration [Recovered/Resolved]
  - Glossitis [Recovered/Resolved]
  - Overdose [Recovered/Resolved]
